FAERS Safety Report 6581303-1 (Version None)
Quarter: 2010Q1

REPORT INFORMATION
  Report Type: 
  Country: None (occurrence: None)
  Receive Date: 20100203
  Receipt Date: 20100121
  Transmission Date: 20100710
  Serious: Yes (Life-Threatening, Hospitalization)
  Sender: FDA-Public Use
  Company Number: 2010-0254

PATIENT
  Age: 46 Year
  Sex: Female

DRUGS (3)
  1. DYSPORT [Suspect]
     Indication: DYSKINESIA
     Dosage: 1000 UNITS, SINGLE CYCLE; INTRAMUSCULAR
     Route: 030
     Dates: start: 20091217, end: 20091217
  2. DYSPORT [Suspect]
     Indication: ENCEPHALITIS
     Dosage: 1000 UNITS, SINGLE CYCLE; INTRAMUSCULAR
     Route: 030
     Dates: start: 20091217, end: 20091217
  3. ABOBUTULINUM TOXIN A [Suspect]

REACTIONS (4)
  - ASPIRATION [None]
  - BOTULISM [None]
  - EYELID PTOSIS [None]
  - PAIN IN EXTREMITY [None]
